FAERS Safety Report 8879879 (Version 1)
Quarter: 2012Q4

REPORT INFORMATION
  Report Type: 
  Country: US (occurrence: US)
  Receive Date: 20121031
  Receipt Date: 20121031
  Transmission Date: 20130627
  Serious: Yes (Hospitalization, Other)
  Sender: FDA-Public Use
  Company Number: US-ROCHE-791178

PATIENT
  Sex: Male
  Weight: 63.56 kg

DRUGS (2)
  1. ACCUTANE [Suspect]
     Indication: ACNE
     Route: 065
     Dates: start: 1997, end: 1998
  2. ACCUTANE [Suspect]
     Route: 065
     Dates: start: 199704, end: 199709

REACTIONS (6)
  - Perirectal abscess [Unknown]
  - Anal fistula [Unknown]
  - Intestinal perforation [Unknown]
  - Crohn^s disease [Unknown]
  - Inflammatory bowel disease [Unknown]
  - Emotional distress [Not Recovered/Not Resolved]
